FAERS Safety Report 12279476 (Version 1)
Quarter: 2016Q2

REPORT INFORMATION
  Report Type: Spontaneous
  Country: US (occurrence: US)
  Receive Date: 20160418
  Receipt Date: 20160418
  Transmission Date: 20160815
  Serious: No
  Sender: FDA-Public Use
  Company Number: US-OTSUKA-2016_005796

PATIENT
  Age: 61 Year
  Sex: Female

DRUGS (1)
  1. REXULTI [Suspect]
     Active Substance: BREXPIPRAZOLE
     Indication: PRODUCT USED FOR UNKNOWN INDICATION
     Dosage: 3 MG, QD
     Route: 065

REACTIONS (7)
  - Restlessness [Unknown]
  - Abnormal dreams [Unknown]
  - Restless legs syndrome [Unknown]
  - Crying [Unknown]
  - Abdominal discomfort [Unknown]
  - Thinking abnormal [Unknown]
  - Self-injurious ideation [Unknown]
